FAERS Safety Report 9074437 (Version 1)
Quarter: 2013Q1

REPORT INFORMATION
  Report Type: Report from Study
  Country: US (occurrence: US)
  Receive Date: 20130129
  Receipt Date: 20130129
  Transmission Date: 20140127
  Serious: No
  Sender: FDA-Public Use
  Company Number: US-ABBOTT-12P-163-0931150-00

PATIENT
  Age: 43 Year
  Sex: Female

DRUGS (6)
  1. HUMIRA 40 MG/0.8 ML PEN [Suspect]
     Indication: CROHN^S DISEASE
     Dosage: LOADING DOSE ON 28 APR 2012
     Dates: start: 20120428
  2. THEOPHYLLINE [Concomitant]
     Indication: ASTHMA
  3. PENTASA [Concomitant]
     Indication: CROHN^S DISEASE
  4. ALBUTEROL [Concomitant]
     Indication: ASTHMA
  5. GENERIC PREVACID [Concomitant]
     Indication: DYSPEPSIA
     Dosage: DAILY
  6. MULTIVITAMIN [Concomitant]
     Indication: PRODUCT USED FOR UNKNOWN INDICATION
     Dosage: DAILY

REACTIONS (2)
  - Pruritus generalised [Unknown]
  - Injection site pain [Recovering/Resolving]
